FAERS Safety Report 8033881-3 (Version None)
Quarter: 2011Q4

REPORT INFORMATION
  Report Type: 
  Country: None (occurrence: None)
  Receive Date: 20111202
  Receipt Date: 20100111
  Transmission Date: 20120403
  Serious: Yes (Hospitalization)
  Sender: FDA-Public Use
  Company Number: 2010SP002393

PATIENT
  Age: 31 Year
  Sex: Female
  Weight: 88.4514 kg

DRUGS (5)
  1. LIPITOR [Concomitant]
  2. ALBUTEROL [Concomitant]
  3. NUVARING [Suspect]
     Indication: CONTRACEPTION
     Dosage: 1 DF;QM;VAG
     Route: 067
     Dates: start: 20060926, end: 20070101
  4. NUVARING [Suspect]
     Indication: HORMONE REPLACEMENT THERAPY
     Dosage: 1 DF;QM;VAG
     Route: 067
     Dates: start: 20060926, end: 20070101
  5. LEVOXYL [Concomitant]

REACTIONS (3)
  - DEEP VEIN THROMBOSIS [None]
  - VULVOVAGINAL CANDIDIASIS [None]
  - VAGINITIS BACTERIAL [None]
